FAERS Safety Report 9399955 (Version 3)
Quarter: 2013Q3

REPORT INFORMATION
  Report Type: Spontaneous
  Country: US (occurrence: US)
  Receive Date: 20130715
  Receipt Date: 20130930
  Transmission Date: 20140515
  Serious: Yes (Death)
  Sender: FDA-Public Use
  Company Number: US-PFIZER INC-2013204997

PATIENT
  Age: 24 Year
  Sex: Male

DRUGS (1)
  1. XALKORI [Suspect]
     Indication: INFLAMMATORY MYOFIBROBLASTIC TUMOUR
     Dosage: 250 MG, 2X/DAY
     Route: 048
     Dates: start: 20130508

REACTIONS (3)
  - Off label use [Fatal]
  - Disease progression [Fatal]
  - Inflammatory myofibroblastic tumour [Fatal]
